FAERS Safety Report 5833512-4 (Version None)
Quarter: 2008Q3

REPORT INFORMATION
  Report Type: 
  Country: None (occurrence: None)
  Receive Date: 20080804
  Receipt Date: 20080804
  Transmission Date: 20090109
  Serious: Yes (Hospitalization, Other)
  Sender: FDA-Public Use
  Company Number: None

PATIENT
  Age: 59 Year
  Sex: Female
  Weight: 54.4316 kg

DRUGS (9)
  1. LEVAQUIN [Suspect]
     Indication: PYELONEPHRITIS
     Dosage: 500MG QD IV DRIP
     Route: 041
     Dates: start: 20080610, end: 20080615
  2. LEVAQUIN [Suspect]
     Indication: SEPSIS
     Dosage: 500MG QD IV DRIP
     Route: 041
     Dates: start: 20080610, end: 20080615
  3. TYLENOL [Concomitant]
  4. ZOFRAN [Concomitant]
  5. COMPAZINE [Concomitant]
  6. REGLAN [Concomitant]
  7. DILAUDID [Concomitant]
  8. KCL SUPPLEMENTS [Concomitant]
  9. CEFTRIAXONE [Concomitant]

REACTIONS (9)
  - ANXIETY [None]
  - ATAXIA [None]
  - EMOTIONAL DISTRESS [None]
  - FALL [None]
  - MUSCULAR WEAKNESS [None]
  - NAUSEA [None]
  - REFUSAL OF TREATMENT BY PATIENT [None]
  - VISION BLURRED [None]
  - VOMITING [None]
